FAERS Safety Report 10455422 (Version 1)
Quarter: 2014Q3

REPORT INFORMATION
  Report Type: Spontaneous
  Country: US (occurrence: None)
  Receive Date: 20140915
  Receipt Date: 20140915
  Transmission Date: 20150326
  Serious: Yes (Death)
  Sender: FDA-Public Use
  Company Number: None

PATIENT
  Age: 84 Year
  Sex: Female

DRUGS (1)
  1. PROCRIT [Suspect]
     Active Substance: ERYTHROPOIETIN
     Indication: RED BLOOD CELL ABNORMALITY
     Route: 058
     Dates: start: 20140530, end: 20140728

REACTIONS (1)
  - Death [None]

NARRATIVE: CASE EVENT DATE: 20140814
